FAERS Safety Report 8912544 (Version 1)
Quarter: 2012Q4

REPORT INFORMATION
  Report Type: Report from Study
  Country: DE (occurrence: DE)
  Receive Date: 20121116
  Receipt Date: 20121116
  Transmission Date: 20130627
  Serious: Yes (Hospitalization, Other)
  Sender: FDA-Public Use
  Company Number: DE-CELGENEUS-062-20785-11041072

PATIENT
  Age: 72 Year
  Sex: Female
  Weight: 72 kg

DRUGS (6)
  1. THALIDOMIDE [Suspect]
     Indication: MULTIPLE MYELOMA
     Dosage: 50 Milligram
     Route: 048
     Dates: start: 20110120
  2. THALIDOMIDE [Suspect]
     Dosage: 50 Milligram
     Route: 048
     Dates: start: 20110218, end: 20110308
  3. AMITRIPTYLINE [Concomitant]
     Indication: DRUG USE FOR UNKNOWN INDICATION
     Route: 065
     Dates: end: 201103
  4. DEXAMETHASONE [Concomitant]
     Indication: MULTIPLE MYELOMA
     Dosage: 12 Milligram
     Route: 048
     Dates: start: 20110120, end: 20110308
  5. CLEXANE [Concomitant]
     Indication: THROMBOSIS PROPHYLAXIS
     Route: 065
  6. PRACTOKLYSS [Concomitant]
     Indication: CONSTIPATION
     Route: 065

REACTIONS (9)
  - Fluid intake reduced [Recovered/Resolved]
  - Decreased appetite [Recovered/Resolved]
  - Nausea [Recovered/Resolved]
  - Vomiting [Recovered/Resolved]
  - Constipation [Recovered/Resolved]
  - Cerebral infarction [Recovered/Resolved with Sequelae]
  - Aphasia [Recovered/Resolved with Sequelae]
  - General physical health deterioration [Recovered/Resolved]
  - Polyneuropathy [Recovered/Resolved with Sequelae]
